FAERS Safety Report 6376742-8 (Version None)
Quarter: 2009Q3

REPORT INFORMATION
  Report Type: 
  Country: None (occurrence: None)
  Receive Date: 20090924
  Receipt Date: 20090924
  Transmission Date: 20100115
  Serious: No
  Sender: FDA-Public Use
  Company Number: None

PATIENT
  Age: 48 Year
  Sex: Female
  Weight: 54.4316 kg

DRUGS (2)
  1. PLAVIX [Suspect]
     Indication: PROPHYLAXIS
     Dosage: 1 X DAILY
     Dates: start: 20090530
  2. PLAVIX [Suspect]
     Indication: THROMBOSIS
     Dosage: 1 X DAILY
     Dates: start: 20090530

REACTIONS (1)
  - CONTUSION [None]
